FAERS Safety Report 15917421 (Version 2)
Quarter: 2019Q4

REPORT INFORMATION
  Report Type: Spontaneous
  Country: US (occurrence: US)
  Receive Date: 20190205
  Receipt Date: 20191001
  Transmission Date: 20200122
  Serious: No
  Sender: FDA-Public Use
  Company Number: US-HTU-2019US018250

PATIENT
  Sex: Male

DRUGS (4)
  1. VALCHLOR [Suspect]
     Active Substance: MECHLORETHAMINE
     Indication: CUTANEOUS T-CELL LYMPHOMA
  2. INTRON A [Concomitant]
     Active Substance: INTERFERON ALFA-2B
  3. CLOBETASOL [Concomitant]
     Active Substance: CLOBETASOL
     Indication: RASH
  4. VALCHLOR [Suspect]
     Active Substance: MECHLORETHAMINE
     Indication: RASH
     Dosage: THIN FILM, QD
     Route: 061
     Dates: start: 201606

REACTIONS (4)
  - Condition aggravated [Unknown]
  - Intentional product misuse [Unknown]
  - Off label use [Unknown]
  - Rash [Not Recovered/Not Resolved]
